FAERS Safety Report 24974780 (Version 1)
Quarter: 2025Q1

REPORT INFORMATION
  Report Type: Spontaneous
  Country: US (occurrence: US)
  Receive Date: 20250217
  Receipt Date: 20250217
  Transmission Date: 20250408
  Serious: No
  Sender: ALKEM
  Company Number: None

PATIENT
  Age: 20 Year
  Sex: Male

DRUGS (2)
  1. FINASTERIDE [Suspect]
     Active Substance: FINASTERIDE
     Indication: Androgenetic alopecia
     Dosage: 1 MILLIGRAM, QD
     Route: 065
  2. FINASTERIDE [Suspect]
     Active Substance: FINASTERIDE
     Dosage: 0.5 MILLIGRAM, QD (DECREASED DOSE)
     Route: 065

REACTIONS (1)
  - Gynaecomastia [Recovered/Resolved]
